FAERS Safety Report 12484070 (Version 1)
Quarter: 2016Q2

REPORT INFORMATION
  Report Type: Report from Study
  Country: FR (occurrence: FR)
  Receive Date: 20160621
  Receipt Date: 20160621
  Transmission Date: 20160815
  Serious: Yes (Hospitalization)
  Sender: FDA-Public Use
  Company Number: FR-ROCHE-GNE320448

PATIENT
  Age: 10 Year
  Sex: Male
  Weight: 23.83 kg

DRUGS (1)
  1. SOMATROPIN [Suspect]
     Active Substance: SOMATROPIN
     Indication: GROWTH HORMONE DEFICIENCY
     Dosage: 10 MG/2ML
     Route: 058
     Dates: start: 20080425

REACTIONS (2)
  - Cryptorchism [Recovered/Resolved with Sequelae]
  - Hypertrophic scar [Not Recovered/Not Resolved]

NARRATIVE: CASE EVENT DATE: 20080507
